FAERS Safety Report 7531083-8 (Version None)
Quarter: 2011Q2

REPORT INFORMATION
  Report Type: 
  Country: None (occurrence: None)
  Receive Date: 20110531
  Receipt Date: 20110526
  Transmission Date: 20111010
  Serious: Yes (Death)
  Sender: FDA-Public Use
  Company Number: 2011SP010994

PATIENT
  Age: 54 Year
  Sex: Female
  Weight: 40 kg

DRUGS (5)
  1. PREDNISOLONE [Suspect]
     Indication: IDIOPATHIC THROMBOCYTOPENIC PURPURA
     Dosage: 60 MG, PO
     Route: 048
     Dates: start: 20110128, end: 20110222
  2. AVELOX [Concomitant]
  3. TEMODAL [Suspect]
     Indication: GLIOSARCOMA
     Dosage: 100 MG QD, PO
     Route: 048
     Dates: start: 20110221, end: 20110306
  4. NEORAL [Suspect]
     Indication: IDIOPATHIC THROMBOCYTOPENIC PURPURA
     Dosage: 200 MG QD, PO
     Route: 048
     Dates: start: 20110209, end: 20110222
  5. COTRIM [Concomitant]

REACTIONS (4)
  - PNEUMOCYSTIS JIROVECI PNEUMONIA [None]
  - PNEUMONIA CYTOMEGALOVIRAL [None]
  - MYDRIASIS [None]
  - GENERAL PHYSICAL HEALTH DETERIORATION [None]
